FAERS Safety Report 11937581 (Version 2)
Quarter: 2016Q1

REPORT INFORMATION
  Report Type: Report from Study
  Country: US (occurrence: US)
  Receive Date: 20160122
  Receipt Date: 20160203
  Transmission Date: 20160526
  Serious: No
  Sender: FDA-Public Use
  Company Number: US-AMGEN-USASL2016005432

PATIENT
  Age: 67 Year
  Sex: Male

DRUGS (1)
  1. ENBREL [Suspect]
     Active Substance: ETANERCEPT
     Indication: RHEUMATOID ARTHRITIS
     Dosage: 50 MG, QWK
     Route: 065
     Dates: start: 200702

REACTIONS (5)
  - Injection site discomfort [Unknown]
  - Injection site haemorrhage [Unknown]
  - Wrong technique in product usage process [Unknown]
  - Device issue [Unknown]
  - Underdose [Unknown]

NARRATIVE: CASE EVENT DATE: 20160115
